FAERS Safety Report 9054210 (Version 1)
Quarter: 2013Q1

REPORT INFORMATION
  Report Type: Spontaneous
  Country: US (occurrence: US)
  Receive Date: 20130208
  Receipt Date: 20130208
  Transmission Date: 20140127
  Serious: No
  Sender: FDA-Public Use
  Company Number: US-ASTRAZENECA-2013SE07911

PATIENT
  Age: 19007 Day
  Sex: Female
  Weight: 120.2 kg

DRUGS (3)
  1. SYMBICORT [Suspect]
     Indication: ASTHMA
     Dosage: 2 PUFFS BID
     Route: 055
     Dates: start: 2010
  2. PREDNISONE [Concomitant]
     Indication: ASTHMA
     Route: 055
  3. AMOXICILLIN [Concomitant]
     Dates: start: 201301

REACTIONS (3)
  - Wheezing [Unknown]
  - Influenza [Recovering/Resolving]
  - Off label use [Unknown]
